FAERS Safety Report 10524133 (Version 1)
Quarter: 2014Q4

REPORT INFORMATION
  Report Type: Spontaneous
  Country: PL (occurrence: None)
  Receive Date: 20141010
  Receipt Date: 20141010
  Transmission Date: 20150528
  Serious: Yes (Hospitalization, Other)
  Sender: FDA-Public Use
  Company Number: PL-LHC-2014087

PATIENT
  Sex: Male

DRUGS (1)
  1. OXYGEN (GENERIC) (OXYGEN) (GAS FOR INHALATION) (VERUM) [Suspect]
     Active Substance: OXYGEN
     Indication: INDUCTION OF ANAESTHESIA
     Dosage: INSUFFLATION

REACTIONS (2)
  - Gastric perforation [None]
  - Gastric dilatation [None]
